FAERS Safety Report 16263091 (Version 1)
Quarter: 2019Q2

REPORT INFORMATION
  Report Type: Spontaneous
  Country: FR (occurrence: FR)
  Receive Date: 20190502
  Receipt Date: 20190502
  Transmission Date: 20190711
  Serious: Yes (Other)
  Sender: FDA-Public Use
  Company Number: FR-TEVA-2019-FR-1044205

PATIENT
  Age: 73 Year
  Sex: Female
  Weight: 58 kg

DRUGS (3)
  1. FLUOROURACILE [Suspect]
     Active Substance: FLUOROURACIL
     Indication: COLORECTAL ADENOCARCINOMA
     Route: 041
     Dates: start: 20121212, end: 20130517
  2. OXALIPLATINE [Suspect]
     Active Substance: OXALIPLATIN
     Indication: COLORECTAL ADENOCARCINOMA
     Route: 041
     Dates: start: 20121212, end: 20130529
  3. FLUOROURACILE [Suspect]
     Active Substance: FLUOROURACIL
     Route: 040
     Dates: start: 20121212, end: 20130529

REACTIONS (1)
  - Paraesthesia [Not Recovered/Not Resolved]

NARRATIVE: CASE EVENT DATE: 20130129
